FAERS Safety Report 24073275 (Version 3)
Quarter: 2025Q3

REPORT INFORMATION
  Report Type: Spontaneous
  Country: US (occurrence: US)
  Receive Date: 20240710
  Receipt Date: 20250721
  Transmission Date: 20251020
  Serious: Yes (Hospitalization)
  Sender: SANOFI AVENTIS
  Company Number: US-SA-SAC20240705000106

PATIENT
  Sex: Male
  Weight: 131.08 kg

DRUGS (5)
  1. DUPIXENT [Suspect]
     Active Substance: DUPILUMAB
     Indication: Dermatitis atopic
     Dosage: 300 MG, QOW
     Route: 058
     Dates: start: 20200608
  2. TRIAMCINOLONE ACETONIDE [Concomitant]
     Active Substance: TRIAMCINOLONE ACETONIDE
  3. BENZOYL PEROXIDE [Concomitant]
     Active Substance: BENZOYL PEROXIDE
  4. CONCERTA [Concomitant]
     Active Substance: METHYLPHENIDATE HYDROCHLORIDE
  5. LORATADINE [Concomitant]
     Active Substance: LORATADINE

REACTIONS (2)
  - Beta haemolytic streptococcal infection [Unknown]
  - Dermatitis atopic [Unknown]
